FAERS Safety Report 20336328 (Version 4)
Quarter: 2023Q1

REPORT INFORMATION
  Report Type: Spontaneous
  Country: US (occurrence: US)
  Receive Date: 20220114
  Receipt Date: 20230203
  Transmission Date: 20230418
  Serious: No
  Sender: FDA-Public Use
  Company Number: US-BRISTOL-MYERS SQUIBB COMPANY-BMS-2022-005172

PATIENT
  Age: 55 Year
  Sex: Male

DRUGS (1)
  1. ORENCIA [Suspect]
     Active Substance: ABATACEPT
     Indication: Rheumatoid arthritis
     Dosage: BATCH NO: ACA7396, EXPIRE DATE: 30-SEP-2023?BATCH NUMBER: ACD7254, EXPIRE DATE: 30-APR-2024
     Route: 058
     Dates: start: 20211216

REACTIONS (2)
  - Joint swelling [Unknown]
  - Arthralgia [Unknown]
